FAERS Safety Report 5409293-5 (Version None)
Quarter: 2007Q3

REPORT INFORMATION
  Report Type: 
  Country: None (occurrence: None)
  Receive Date: 20070807
  Receipt Date: 20070807
  Transmission Date: 20080115
  Serious: Yes (Hospitalization)
  Sender: FDA-Public Use
  Company Number: None

PATIENT
  Age: 66 Year
  Sex: Male

DRUGS (6)
  1. NAPROXEN [Suspect]
     Indication: OSTEOARTHRITIS
     Dosage: 220 MG DAILY PO
     Route: 048
  2. ACE INHIBITOR [Concomitant]
  3. PRESTARIUM [Concomitant]
  4. CALCIUM CITRATE [Concomitant]
  5. SIMETHICONE [Concomitant]
  6. INDAPAMIDE [Concomitant]

REACTIONS (6)
  - DEHYDRATION [None]
  - DIARRHOEA [None]
  - HAEMODIALYSIS [None]
  - NAUSEA [None]
  - RENAL FAILURE ACUTE [None]
  - VOMITING [None]
